FAERS Safety Report 6421734-3 (Version None)
Quarter: 2009Q4

REPORT INFORMATION
  Report Type: 
  Country: None (occurrence: None)
  Receive Date: 20091030
  Receipt Date: 20091026
  Transmission Date: 20100525
  Serious: Yes (Hospitalization)
  Sender: FDA-Public Use
  Company Number: US-ELI_LILLY_AND_COMPANY-US200910004509

PATIENT
  Sex: Male
  Weight: 151.93 kg

DRUGS (4)
  1. BYETTA [Suspect]
     Indication: TYPE 2 DIABETES MELLITUS
     Dosage: 10 UG, 2/D
     Route: 058
     Dates: start: 20070101, end: 20091013
  2. AVANDAMET [Concomitant]
     Indication: TYPE 2 DIABETES MELLITUS
     Dosage: UNK, 2/D
  3. NEXIUM [Concomitant]
     Indication: GASTROOESOPHAGEAL REFLUX DISEASE
     Dosage: 4 MG, DAILY (1/D)
     Dates: start: 20070101
  4. NEXIUM [Concomitant]
     Route: 042

REACTIONS (8)
  - ABDOMINAL DISCOMFORT [None]
  - ABDOMINAL PAIN [None]
  - ABDOMINAL TENDERNESS [None]
  - BLOOD GLUCOSE INCREASED [None]
  - CHOLELITHIASIS [None]
  - DECREASED APPETITE [None]
  - PANCREATITIS [None]
  - WEIGHT DECREASED [None]
